FAERS Safety Report 8441608-6 (Version None)
Quarter: 2012Q2

REPORT INFORMATION
  Report Type: 
  Country: None (occurrence: None)
  Receive Date: 20120615
  Receipt Date: 20111011
  Transmission Date: 20120825
  Serious: No
  Sender: FDA-Public Use
  Company Number: US-NOVEN-11US003410

PATIENT
  Sex: Male
  Weight: 41.723 kg

DRUGS (2)
  1. DAYTRANA [Suspect]
     Dosage: 10 MG, QD
     Route: 062
     Dates: start: 20040101, end: 20111009
  2. DAYTRANA [Suspect]
     Indication: PRODUCT USED FOR UNKNOWN INDICATION
     Dosage: 15 MG, QD
     Route: 062
     Dates: start: 20111010

REACTIONS (7)
  - LOGORRHOEA [None]
  - AGITATION [None]
  - DECREASED APPETITE [None]
  - DRUG INEFFECTIVE [None]
  - OFF LABEL USE [None]
  - PRURITUS [None]
  - INSOMNIA [None]
